FAERS Safety Report 8801107 (Version 1)
Quarter: 2012Q4

REPORT INFORMATION
  Report Type: 
  Country: FR (occurrence: FR)
  Receive Date: 20120921
  Receipt Date: 20120921
  Transmission Date: 20130627
  Serious: Yes (Hospitalization)
  Sender: FDA-Public Use
  Company Number: FR-GLAXOSMITHKLINE-B0829761A

PATIENT
  Age: 41 Year
  Sex: Female

DRUGS (5)
  1. LAMICTAL [Suspect]
     Indication: BIPOLAR DISORDER
     Route: 048
     Dates: start: 20120723, end: 20120816
  2. ZYPREXA [Suspect]
     Indication: BIPOLAR DISORDER
     Route: 048
     Dates: start: 20120705, end: 20120822
  3. TERALITHE [Concomitant]
     Indication: BIPOLAR DISORDER
     Dosage: 600MG Per day
     Route: 048
     Dates: start: 20120629
  4. SELOZOK [Concomitant]
     Indication: HYPERTENSION
     Dosage: 23.75MG Per day
     Route: 048
     Dates: start: 20120629
  5. ZOPICLONE [Concomitant]
     Dates: start: 20120629

REACTIONS (6)
  - Hyperthermia [Recovering/Resolving]
  - Rash maculo-papular [Recovering/Resolving]
  - Eyelid oedema [Recovering/Resolving]
  - Liver function test abnormal [Recovering/Resolving]
  - Eosinophil count increased [Recovering/Resolving]
  - Monocyte count increased [Recovering/Resolving]
